FAERS Safety Report 4333485-X (Version None)
Quarter: 2004Q1

REPORT INFORMATION
  Report Type: 
  Country: None (occurrence: None)
  Receive Date: 20040329
  Receipt Date: 20040213
  Transmission Date: 20041129
  Serious: No
  Sender: FDA-Public Use
  Company Number: 04P-163-0250172-00

PATIENT
  Age: 57 Year
  Sex: Female
  Weight: 71.2147 kg

DRUGS (20)
  1. HUMIRA [Suspect]
     Indication: RHEUMATOID ARTHRITIS
     Dosage: 40 MG, 1 IN 2 WK, SUBCUTANEOUS
     Route: 058
     Dates: start: 20031101, end: 20031201
  2. HUMIRA [Suspect]
     Indication: RHEUMATOID ARTHRITIS
     Dosage: 40 MG, 1 IN 2 WK, SUBCUTANEOUS
     Route: 058
     Dates: start: 20031201
  3. OMEPRAZOLE [Concomitant]
  4. VENLAFAXINE HCL [Concomitant]
  5. HYDROCODONE [Concomitant]
  6. HYDROCHLOROTHIAZIDE [Concomitant]
  7. LISINOPRIL [Concomitant]
  8. PREDNISONE [Concomitant]
  9. CLONAZEPAM [Concomitant]
  10. AMLODIPINE BESYLATE [Concomitant]
  11. BUSPIRONE HCL [Concomitant]
  12. SIMVASTATIN [Concomitant]
  13. CETIRIZINE HCL [Concomitant]
  14. BUCINDOLOL HYDROCHLORIDE [Concomitant]
  15. TOLTERODINE TARTRATE [Concomitant]
  16. NORTRIPTYLINE HCL [Concomitant]
  17. FOLIC ACID [Concomitant]
  18. ZOLPIDEM TARTRATE [Concomitant]
  19. METHOTREXATE [Concomitant]
  20. HYDROCORTISONE [Concomitant]

REACTIONS (5)
  - INJECTION SITE ERYTHEMA [None]
  - INJECTION SITE PAIN [None]
  - INJECTION SITE PRURITUS [None]
  - INJECTION SITE URTICARIA [None]
  - INJECTION SITE WARMTH [None]
